FAERS Safety Report 22382538 (Version 1)
Quarter: 2023Q2

REPORT INFORMATION
  Report Type: Spontaneous
  Country: HR (occurrence: HR)
  Receive Date: 20230530
  Receipt Date: 20230530
  Transmission Date: 20230721
  Serious: Yes (Life-Threatening, Hospitalization)
  Sender: FDA-Public Use
  Company Number: HR-MACLEODS PHARMACEUTICALS US LTD-MAC2023041532

PATIENT

DRUGS (2)
  1. SEVELAMER [Suspect]
     Active Substance: SEVELAMER
     Indication: Hyperphosphataemia
     Dosage: 1.6 GRAM, QD
     Route: 065
  2. SEVELAMER [Suspect]
     Active Substance: SEVELAMER
     Indication: Chronic kidney disease

REACTIONS (7)
  - Mass [Recovered/Resolved]
  - Inflammatory bowel disease [Recovered/Resolved]
  - Shock haemorrhagic [Recovered/Resolved]
  - Colitis ischaemic [Recovered/Resolved]
  - Necrosis [Recovered/Resolved]
  - Large intestinal ulcer haemorrhage [Recovered/Resolved]
  - Large intestine perforation [Recovered/Resolved]
